FAERS Safety Report 6705788-2 (Version None)
Quarter: 2010Q2

REPORT INFORMATION
  Report Type: 
  Country: None (occurrence: None)
  Receive Date: 20100503
  Receipt Date: 20100420
  Transmission Date: 20101027
  Serious: Yes (Hospitalization, Disabling, Other)
  Sender: FDA-Public Use
  Company Number: US-BAYER-200933377NA

PATIENT
  Age: 30 Year
  Sex: Female
  Weight: 78 kg

DRUGS (13)
  1. YASMIN [Suspect]
     Indication: ORAL CONTRACEPTION
     Route: 048
     Dates: start: 20040101
  2. AMOXICILLIN [Concomitant]
  3. ANTICOAGULANTS [Concomitant]
  4. EXCEDRIN (MIGRAINE) [Concomitant]
     Indication: MIGRAINE
  5. EXCEDRIN (MIGRAINE) [Concomitant]
  6. IBUPROFEN [Concomitant]
  7. AGGRENOX [Concomitant]
  8. PLAVIX [Concomitant]
  9. PANTOPRAZOL [Concomitant]
  10. ASPIRIN [Concomitant]
     Dosage: 81 MG
     Route: 065
  11. DESOGEN [Concomitant]
     Indication: MENSTRUATION IRREGULAR
  12. TYLENOL COLD [Concomitant]
  13. TYLENOL SINUS [Concomitant]

REACTIONS (8)
  - AGRAPHIA [None]
  - ALOPECIA [None]
  - APHASIA [None]
  - COGNITIVE DISORDER [None]
  - ISCHAEMIC STROKE [None]
  - LEARNING DISORDER [None]
  - PAIN [None]
  - VISUAL IMPAIRMENT [None]
